FAERS Safety Report 17422192 (Version 2)
Quarter: 2020Q1

REPORT INFORMATION
  Report Type: Report from Study
  Country: US (occurrence: US)
  Receive Date: 20200214
  Receipt Date: 20200226
  Transmission Date: 20200409
  Serious: Yes (Other)
  Sender: FDA-Public Use
  Company Number: US-ACTELION-A-NJ2020-200669

PATIENT
  Age: 61 Year
  Sex: Female
  Weight: 106.58 kg

DRUGS (17)
  1. UPTRAVI [Suspect]
     Active Substance: SELEXIPAG
     Indication: PULMONARY HYPERTENSION
     Dosage: 200 MCG, BID
     Route: 048
     Dates: start: 20200118, end: 20200129
  2. ALBUTEROL. [Concomitant]
     Active Substance: ALBUTEROL
  3. SYMBICORT [Concomitant]
     Active Substance: BUDESONIDE\FORMOTEROL FUMARATE DIHYDRATE
  4. ALLOPURINOL. [Concomitant]
     Active Substance: ALLOPURINOL
  5. AMBRISENTAN [Concomitant]
     Active Substance: AMBRISENTAN
     Dosage: UNK
  6. TORSEMIDE. [Concomitant]
     Active Substance: TORSEMIDE
  7. FLUOXETINE [Concomitant]
     Active Substance: FLUOXETINE HYDROCHLORIDE
  8. OMEPRAZOLE. [Concomitant]
     Active Substance: OMEPRAZOLE
  9. COQ10 [Concomitant]
     Active Substance: UBIDECARENONE
  10. THEOPHYLLINE [Concomitant]
     Active Substance: THEOPHYLLINE ANHYDROUS
  11. CARVEDILOL AURBINDO [Concomitant]
  12. VITAMIN D3 CALCIUM [Concomitant]
     Active Substance: CALCIUM\CHOLECALCIFEROL
  13. BENADRYL [Concomitant]
     Active Substance: DIPHENHYDRAMINE HYDROCHLORIDE
  14. ACETAMINOPHEN. [Concomitant]
     Active Substance: ACETAMINOPHEN
  15. POTASSIUM CHLORIDE. [Concomitant]
     Active Substance: POTASSIUM CHLORIDE
  16. LEVOTHYROXINE. [Concomitant]
     Active Substance: LEVOTHYROXINE
  17. OMEGA 3 [Concomitant]
     Active Substance: OMEGA-3 FATTY ACIDS

REACTIONS (14)
  - Malaise [Unknown]
  - Urticaria [Recovering/Resolving]
  - Headache [Recovered/Resolved]
  - Fatigue [Unknown]
  - Weight decreased [Unknown]
  - Product dose omission [Unknown]
  - Skin exfoliation [Recovering/Resolving]
  - Peripheral swelling [Recovering/Resolving]
  - Eye operation [Unknown]
  - Stevens-Johnson syndrome [Recovering/Resolving]
  - Swelling [Not Recovered/Not Resolved]
  - Rash [Recovering/Resolving]
  - Feeling hot [Recovering/Resolving]
  - Impaired healing [Unknown]

NARRATIVE: CASE EVENT DATE: 202001
